FAERS Safety Report 7117699-1 (Version None)
Quarter: 2010Q4

REPORT INFORMATION
  Report Type: 
  Country: None (occurrence: None)
  Receive Date: 20101123
  Receipt Date: 20101115
  Transmission Date: 20110411
  Serious: Yes (Hospitalization)
  Sender: FDA-Public Use
  Company Number: US-BIOGENIDEC-2010BI040214

PATIENT
  Age: 48 Year
  Sex: Female

DRUGS (3)
  1. AVONEX [Suspect]
     Indication: MULTIPLE SCLEROSIS
     Route: 030
  2. AVONEX [Suspect]
     Route: 030
     Dates: end: 20090101
  3. AVONEX [Suspect]
     Route: 030
     Dates: start: 20100801, end: 20101114

REACTIONS (3)
  - ANKLE FRACTURE [None]
  - FALL [None]
  - MULTIPLE SCLEROSIS [None]
